FAERS Safety Report 5065390-8 (Version None)
Quarter: 2006Q3

REPORT INFORMATION
  Report Type: 
  Country: None (occurrence: None)
  Receive Date: 20060707
  Receipt Date: 20060201
  Transmission Date: 20061208
  Serious: Yes (Hospitalization)
  Sender: FDA-Public Use
  Company Number: SUS1-2006-00074

PATIENT
  Age: 70 Year
  Sex: Male

DRUGS (5)
  1. PENTASA [Suspect]
     Indication: BEHCET'S SYNDROME
     Dosage: SEE IMAGE
     Route: 048
     Dates: start: 20050401, end: 20050101
  2. PENTASA [Suspect]
     Indication: BEHCET'S SYNDROME
     Dosage: SEE IMAGE
     Route: 048
     Dates: start: 20050530, end: 20050530
  3. AZELASTINE HYDROCHLORIDE (AZELASTINE HYDROCHLORIDE) [Concomitant]
  4. COLCHICUM JTL LIQ [Concomitant]
  5. NIZATIDINE [Concomitant]

REACTIONS (1)
  - PANCREATITIS [None]
